FAERS Safety Report 17811100 (Version 1)
Quarter: 2020Q2

REPORT INFORMATION
  Report Type: Spontaneous
  Country: MY (occurrence: MY)
  Receive Date: 20200521
  Receipt Date: 20200521
  Transmission Date: 20200714
  Serious: Yes (Other)
  Sender: FDA-Public Use
  Company Number: MY-TORRENT-00000238

PATIENT
  Age: 25 Year
  Sex: Male

DRUGS (1)
  1. TORLEVA 500MG TABLET [Suspect]
     Active Substance: LEVETIRACETAM
     Indication: EPILEPSY
     Route: 048

REACTIONS (5)
  - Restlessness [Recovered/Resolved]
  - Insomnia [Recovered/Resolved]
  - Salivary hypersecretion [Recovered/Resolved]
  - Dizziness [Recovered/Resolved]
  - Product substitution issue [Unknown]
